FAERS Safety Report 19351214 (Version 1)
Quarter: 2021Q2

REPORT INFORMATION
  Report Type: Report from Study
  Country: DE (occurrence: DE)
  Receive Date: 20210531
  Receipt Date: 20210531
  Transmission Date: 20210717
  Serious: Yes (Other)
  Sender: FDA-Public Use
  Company Number: DE-PBT-000440

PATIENT
  Age: 69 Year
  Weight: 69 kg

DRUGS (10)
  1. PREDNISOLONE. [Concomitant]
     Active Substance: PREDNISOLONE
     Indication: IMMUNOSUPPRESSION
     Dosage: 5, UNKNOWN UNITS, ONCE DAILY
     Route: 065
     Dates: start: 20170420
  2. PREDNISOLONE. [Concomitant]
     Active Substance: PREDNISOLONE
     Indication: IMMUNOSUPPRESSION
     Dosage: 20, UNKNOWN UNITS, ONCE DAILY
     Dates: start: 20161014, end: 20170111
  3. PREDNISOLONE. [Concomitant]
     Active Substance: PREDNISOLONE
     Indication: IMMUNOSUPPRESSION
     Dosage: 250, UNKNOWN UNITS, ONCE DAILY
     Route: 065
     Dates: start: 20161008, end: 20161010
  4. MYCOPHENOLATE MOFETIL. [Concomitant]
     Active Substance: MYCOPHENOLATE MOFETIL
     Indication: IMMUNOSUPPRESSION
     Dosage: 1500, UNKNOWN UNITS, ONCE DAILY
     Route: 065
     Dates: start: 20161008, end: 20170111
  5. TACROLIMUS. [Suspect]
     Active Substance: TACROLIMUS
     Indication: IMMUNOSUPPRESSION
     Dosage: MODIFIED?RELEASE CAPSULE, HARD
     Route: 048
     Dates: start: 20161019, end: 20170714
  6. MYCOPHENOLATE MOFETIL. [Concomitant]
     Active Substance: MYCOPHENOLATE MOFETIL
     Indication: IMMUNOSUPPRESSION
     Dosage: 1000, UNKNOWN UNITS, ONCE DAILY
     Route: 065
     Dates: start: 20170112
  7. PREDNISOLONE. [Concomitant]
     Active Substance: PREDNISOLONE
     Indication: IMMUNOSUPPRESSION
     Dosage: 10, UNKNOWN UNITS, ONCE DAILY
     Route: 065
     Dates: start: 20170112, end: 20170419
  8. MYCOPHENOLATE MOFETIL. [Concomitant]
     Active Substance: MYCOPHENOLATE MOFETIL
     Indication: IMMUNOSUPPRESSION
     Dosage: 2000, UNKNOWN UNITS, ONCE DAILY
     Route: 065
     Dates: start: 20161005, end: 20161007
  9. PREDNISOLONE. [Concomitant]
     Active Substance: PREDNISOLONE
     Indication: IMMUNOSUPPRESSION
     Dosage: 250, UNKNOWN UNITS, ONCE DAILY
     Route: 065
     Dates: start: 20161005, end: 20161007
  10. PREDNISOLONE. [Concomitant]
     Active Substance: PREDNISOLONE
     Indication: IMMUNOSUPPRESSION
     Dosage: 125, UNKNOWN UNITS, ONCE DAILY
     Route: 065
     Dates: start: 20161011, end: 20161013

REACTIONS (1)
  - Polyomavirus viraemia [Not Recovered/Not Resolved]

NARRATIVE: CASE EVENT DATE: 20170303
